FAERS Safety Report 17480387 (Version 1)
Quarter: 2020Q1

REPORT INFORMATION
  Report Type: Spontaneous
  Country: US (occurrence: US)
  Receive Date: 20200228
  Receipt Date: 20200228
  Transmission Date: 20200409
  Serious: No
  Sender: FDA-Public Use
  Company Number: US-JNJFOC-20200224495

PATIENT
  Sex: Female
  Weight: 85.81 kg

DRUGS (1)
  1. WOMENS ROGAINE UNSCENTED [Suspect]
     Active Substance: MINOXIDIL
     Indication: ALOPECIA
     Dosage: CAP SIZE
     Route: 061

REACTIONS (3)
  - Hyperaesthesia [Recovered/Resolved]
  - Application site erythema [Recovered/Resolved]
  - Overdose [Unknown]
